FAERS Safety Report 24159627 (Version 3)
Quarter: 2024Q4

REPORT INFORMATION
  Report Type: Spontaneous
  Country: US (occurrence: US)
  Receive Date: 20240731
  Receipt Date: 20241105
  Transmission Date: 20250114
  Serious: Yes (Other)
  Sender: AURINIA PHARMACEUTICALS
  Company Number: US-AURINIA PHARMACEUTICALS INC.-AUR-006162

PATIENT
  Age: 63 Year
  Sex: Male

DRUGS (3)
  1. LUPKYNIS [Suspect]
     Active Substance: VOCLOSPORIN
     Indication: Lupus nephritis
     Dosage: 15.8 MILLIGRAM, BID
     Route: 048
     Dates: start: 20240401
  2. LUPKYNIS [Suspect]
     Active Substance: VOCLOSPORIN
     Dosage: 15.8 MILLIGRAM, BID
     Route: 048
     Dates: start: 20240405
  3. LUPKYNIS [Suspect]
     Active Substance: VOCLOSPORIN
     Dosage: 15.8 MILLIGRAM, BID
     Route: 048

REACTIONS (16)
  - Glomerular filtration rate decreased [Unknown]
  - Prostate cancer [Unknown]
  - Arthralgia [Unknown]
  - Back pain [Unknown]
  - Joint stiffness [Unknown]
  - Mobility decreased [Unknown]
  - Muscle spasms [Unknown]
  - Myalgia [Unknown]
  - Osteoarthritis [Unknown]
  - Urine protein/creatinine ratio increased [Unknown]
  - Protein urine present [Recovering/Resolving]
  - Malaise [Unknown]
  - Dehydration [Recovering/Resolving]
  - Weight decreased [Unknown]
  - Fatigue [Unknown]
  - Underdose [Unknown]

NARRATIVE: CASE EVENT DATE: 20240405
